FAERS Safety Report 9904205 (Version 1)
Quarter: 2014Q1

REPORT INFORMATION
  Report Type: Spontaneous
  Country: MX (occurrence: MX)
  Receive Date: 20140218
  Receipt Date: 20140218
  Transmission Date: 20141002
  Serious: Yes (Life-Threatening)
  Sender: FDA-Public Use
  Company Number: MX-ROCHE-1348843

PATIENT
  Age: 35 Year
  Sex: Female
  Weight: 67 kg

DRUGS (4)
  1. RIVOTRIL [Suspect]
     Indication: DEPRESSION
     Route: 048
     Dates: start: 1996, end: 20140201
  2. RIVOTRIL [Suspect]
     Indication: ANXIETY
     Route: 048
     Dates: start: 20140205
  3. RIVOTRIL [Suspect]
     Indication: PANIC ATTACK
  4. VALERIANA [Concomitant]
     Route: 065

REACTIONS (5)
  - Suicidal ideation [Recovered/Resolved]
  - Panic attack [Recovered/Resolved]
  - Insomnia [Recovering/Resolving]
  - Dyspnoea [Recovered/Resolved]
  - Exposure during pregnancy [Unknown]
